FAERS Safety Report 19258767 (Version 1)
Quarter: 2021Q2

REPORT INFORMATION
  Report Type: Spontaneous
  Country: US (occurrence: US)
  Receive Date: 20210514
  Receipt Date: 20210514
  Transmission Date: 20210717
  Serious: Yes (Hospitalization)
  Sender: FDA-Public Use
  Company Number: US-CUMBERLAND-2021-US-000015

PATIENT
  Age: 37 Year
  Sex: Female

DRUGS (6)
  1. PIPERACILLIN/TAZOBACTUM [Concomitant]
     Active Substance: PIPERACILLIN SODIUM\TAZOBACTAM SODIUM
  2. VANCOMYCIN [Concomitant]
     Active Substance: VANCOMYCIN
  3. CEFEPIME [Concomitant]
     Active Substance: CEFEPIME HYDROCHLORIDE
  4. RIFAXIMIN. [Concomitant]
     Active Substance: RIFAXIMIN
  5. KRISTALOSE [Suspect]
     Active Substance: LACTULOSE
  6. CASPOFUNGIN [Concomitant]
     Active Substance: CASPOFUNGIN

REACTIONS (2)
  - Pneumatosis intestinalis [Recovered/Resolved]
  - Off label use [Unknown]
